FAERS Safety Report 14605470 (Version 1)
Quarter: 2018Q1

REPORT INFORMATION
  Report Type: Spontaneous
  Country: US (occurrence: US)
  Receive Date: 20180306
  Receipt Date: 20180306
  Transmission Date: 20180509
  Serious: No
  Sender: FDA-Public Use
  Company Number: US-INTERCEPT-PMOCA2017001631

PATIENT

DRUGS (13)
  1. URSODIOL. [Concomitant]
     Active Substance: URSODIOL
  2. CALCIUM [Concomitant]
     Active Substance: CALCIUM
  3. MULTI VIT [Concomitant]
  4. CELEBREX [Concomitant]
     Active Substance: CELECOXIB
  5. ALLEGRA [Concomitant]
     Active Substance: FEXOFENADINE HYDROCHLORIDE
     Dosage: UNK
  6. OCALIVA [Suspect]
     Active Substance: OBETICHOLIC ACID
     Indication: PRIMARY BILIARY CHOLANGITIS
     Dosage: 5 MG, QD
     Route: 048
     Dates: start: 20171122, end: 20171208
  7. PRILOSEC [Concomitant]
     Active Substance: OMEPRAZOLE MAGNESIUM
  8. AMITIZA [Concomitant]
     Active Substance: LUBIPROSTONE
  9. ZANTAC [Concomitant]
     Active Substance: RANITIDINE HYDROCHLORIDE
  10. XOLAIR [Suspect]
     Active Substance: OMALIZUMAB
  11. EPIPEN [Concomitant]
     Active Substance: EPINEPHRINE
  12. HYDROXYZINE [Concomitant]
     Active Substance: HYDROXYZINE HYDROCHLORIDE
  13. PROVIGIL [Concomitant]
     Active Substance: MODAFINIL

REACTIONS (3)
  - Diarrhoea [Not Recovered/Not Resolved]
  - Abnormal faeces [Not Recovered/Not Resolved]
  - Abdominal pain upper [Not Recovered/Not Resolved]

NARRATIVE: CASE EVENT DATE: 20171208
